FAERS Safety Report 8078493-0 (Version None)
Quarter: 2012Q1

REPORT INFORMATION
  Report Type: 
  Country: None (occurrence: None)
  Receive Date: 20120127
  Receipt Date: 20120127
  Transmission Date: 20120608
  Serious: Yes (Disabling)
  Sender: FDA-Public Use
  Company Number: None

PATIENT
  Age: 70 Year
  Sex: Female
  Weight: 63.5036 kg

DRUGS (1)
  1. AZITHROMYCIN [Suspect]
     Indication: OTITIS MEDIA
     Dosage: 250 MG PAK 2 FIRST DAY 1 NEXT DAY UNTIL ALL GONE
     Dates: start: 20111017

REACTIONS (1)
  - TINNITUS [None]
